FAERS Safety Report 12723931 (Version 3)
Quarter: 2016Q4

REPORT INFORMATION
  Report Type: Report from Study
  Country: US (occurrence: US)
  Receive Date: 20160908
  Receipt Date: 20161214
  Transmission Date: 20170207
  Serious: Yes (Hospitalization)
  Sender: FDA-Public Use
  Company Number: US-JNJFOC-20160904302

PATIENT
  Age: 11 Year
  Sex: Female
  Weight: 27.5 kg

DRUGS (3)
  1. HYDROCORTISONE. [Concomitant]
     Active Substance: HYDROCORTISONE
     Route: 065
  2. HUMIRA [Concomitant]
     Active Substance: ADALIMUMAB
     Route: 065
  3. REMICADE [Suspect]
     Active Substance: INFLIXIMAB
     Indication: INFLAMMATORY BOWEL DISEASE
     Route: 042
     Dates: start: 20130426

REACTIONS (1)
  - Anal abscess [Recovered/Resolved with Sequelae]

NARRATIVE: CASE EVENT DATE: 20160803
